FAERS Safety Report 9552590 (Version 1)
Quarter: 2013Q3

REPORT INFORMATION
  Report Type: Spontaneous
  Country: US (occurrence: US)
  Receive Date: 20130925
  Receipt Date: 20130925
  Transmission Date: 20140515
  Serious: Yes (Other)
  Sender: FDA-Public Use
  Company Number: US-BAYER-2013-114761

PATIENT
  Age: 53 Year
  Sex: Female
  Weight: 51.25 kg

DRUGS (5)
  1. ALKA-SELTZER PLUS COLD FORMULA DAY/NIGHT EFFERVESCENT COMBI DAY [Suspect]
     Indication: NASOPHARYNGITIS
     Dosage: 1 DF, ONCE
     Route: 048
     Dates: start: 20130919, end: 20130919
  2. ALKA-SELTZER PLUS COLD FORMULA DAY/NIGHT EFFERVESCENT COMBI NIGHT [Suspect]
     Indication: NASOPHARYNGITIS
     Dosage: 1 DF, ONCE
     Route: 048
     Dates: start: 20130919, end: 20130919
  3. ALKA-SELTZER PLUS COLD + FLU FORMULA DAY/NIGHT LIQUID GEL COMBI DA [Suspect]
     Indication: NASOPHARYNGITIS
     Dosage: 1 DF, PRN
     Route: 048
     Dates: start: 2013
  4. ALKA-SELTZER PLUS COLD + FLU FORMULA DAY/NIGHT LIQUID GEL COMBI NI [Suspect]
     Indication: NASOPHARYNGITIS
     Dosage: 1 DF, PRN
     Route: 048
     Dates: start: 2013
  5. TRILIPIX [Concomitant]

REACTIONS (3)
  - Choking [Recovered/Resolved]
  - Wrong technique in drug usage process [None]
  - Initial insomnia [Recovered/Resolved]
